FAERS Safety Report 19607939 (Version 1)
Quarter: 2021Q3

REPORT INFORMATION
  Report Type: Spontaneous
  Country: US (occurrence: US)
  Receive Date: 20210726
  Receipt Date: 20210726
  Transmission Date: 20211014
  Serious: No
  Sender: FDA-Public Use
  Company Number: US-TEVA-2021-US-1933715

PATIENT
  Age: 46 Year
  Sex: Female
  Weight: 54.43 kg

DRUGS (2)
  1. ALBUTEROL SULFATE HFA [Suspect]
     Active Substance: ALBUTEROL SULFATE
     Indication: DYSPNOEA
     Dosage: 2 PUFFS EVERY SO MANY HOURS
     Route: 065
     Dates: start: 20210225
  2. WELLBUTRIN [Concomitant]
     Active Substance: BUPROPION HYDROCHLORIDE
     Route: 065

REACTIONS (1)
  - Alcohol test false positive [Unknown]

NARRATIVE: CASE EVENT DATE: 202103
